FAERS Safety Report 10009372 (Version 2)
Quarter: 2014Q1

REPORT INFORMATION
  Report Type: Spontaneous
  Country: US (occurrence: US)
  Receive Date: 20140313
  Receipt Date: 20140313
  Transmission Date: 20141002
  Serious: Yes (Other)
  Sender: FDA-Public Use
  Company Number: US-INCYTE CORPORATION-2012IN001202

PATIENT
  Age: 61 Year
  Sex: Male
  Weight: 81.63 kg

DRUGS (11)
  1. JAKAFI [Suspect]
     Indication: MYELOFIBROSIS
     Dosage: 10 MG, BID
     Route: 048
     Dates: start: 20120221, end: 20120830
  2. PREDNISONE [Concomitant]
     Dosage: 50 MG, BID
  3. DIOVAN [Concomitant]
  4. OMEPRAZOLE [Concomitant]
  5. LORAZEPAM [Concomitant]
  6. COUMADIN [Concomitant]
  7. ZOMETA [Concomitant]
  8. TYLENOL [Concomitant]
  9. ARANESP [Concomitant]
  10. B12 [Concomitant]
  11. NEULASTA [Concomitant]

REACTIONS (10)
  - Platelet count decreased [Unknown]
  - Haemoglobin decreased [Unknown]
  - Haematocrit decreased [Unknown]
  - Activities of daily living impaired [Unknown]
  - Muscular weakness [Unknown]
  - Mood altered [Unknown]
  - Fatigue [Unknown]
  - Malaise [Unknown]
  - Lethargy [Unknown]
  - Haemolysis [None]
